FAERS Safety Report 11180263 (Version 1)
Quarter: 2015Q2

REPORT INFORMATION
  Report Type: Spontaneous
  Country: PT (occurrence: None)
  Receive Date: 20150609
  Receipt Date: 20150609
  Transmission Date: 20150821
  Serious: Yes (Other)
  Sender: FDA-Public Use
  Company Number: FK201502569

PATIENT
  Age: 65 Year
  Sex: Male

DRUGS (2)
  1. CEFTRIAXONE SODIUM. [Suspect]
     Active Substance: CEFTRIAXONE SODIUM
     Indication: PRODUCT USED FOR UNKNOWN INDICATION
  2. ACYCLOVIR SODIUM. [Suspect]
     Active Substance: ACYCLOVIR SODIUM
     Indication: PRODUCT USED FOR UNKNOWN INDICATION

REACTIONS (11)
  - Spastic paraplegia [None]
  - Non-Hodgkin^s lymphoma [None]
  - Extensor plantar response [None]
  - Pain in extremity [None]
  - Myelitis [None]
  - Hypoaesthesia [None]
  - Splenomegaly [None]
  - Disease progression [None]
  - Lymphadenopathy [None]
  - Nuclear magnetic resonance imaging brain abnormal [None]
  - Off label use [None]
